FAERS Safety Report 8135928-2 (Version None)
Quarter: 2012Q1

REPORT INFORMATION
  Report Type: 
  Country: None (occurrence: None)
  Receive Date: 20120214
  Receipt Date: 20120213
  Transmission Date: 20120608
  Serious: Yes (Other)
  Sender: FDA-Public Use
  Company Number: US-PFIZER INC-2009313743

PATIENT
  Sex: Female

DRUGS (2)
  1. LIPITOR [Suspect]
     Indication: CARDIAC DISORDER
     Dosage: UNK
  2. CARDURA [Suspect]
     Dosage: UNK

REACTIONS (4)
  - FATIGUE [None]
  - DIABETES MELLITUS [None]
  - HYPERTENSION [None]
  - PAIN [None]
